FAERS Safety Report 25841781 (Version 1)
Quarter: 2025Q3

REPORT INFORMATION
  Report Type: Spontaneous
  Country: US (occurrence: US)
  Receive Date: 20250924
  Receipt Date: 20250924
  Transmission Date: 20251021
  Serious: No
  Sender: BIOMARIN
  Company Number: US-BIOMARINAP-US-2025-168941

PATIENT
  Age: 9 Year
  Sex: Male
  Weight: 52 kg

DRUGS (1)
  1. KUVAN [Suspect]
     Active Substance: SAPROPTERIN DIHYDROCHLORIDE
     Indication: Mental disorder
     Dosage: 2.5 MILLIGRAM, QD

REACTIONS (2)
  - Drug effective for unapproved indication [Unknown]
  - No adverse event [Unknown]
